FAERS Safety Report 21271302 (Version 1)
Quarter: 2022Q3

REPORT INFORMATION
  Report Type: Report from Study
  Country: US (occurrence: US)
  Receive Date: 20220830
  Receipt Date: 20220830
  Transmission Date: 20221027
  Serious: Yes (Hospitalization)
  Sender: FDA-Public Use
  Company Number: US-BAYER-2022A117467

PATIENT
  Age: 69 Year
  Sex: Male

DRUGS (2)
  1. STIVARGA [Suspect]
     Active Substance: REGORAFENIB
     Indication: Colorectal cancer
     Dosage: 160 MG, QD
     Dates: start: 20220713
  2. STIVARGA [Suspect]
     Active Substance: REGORAFENIB
     Indication: Colorectal cancer
     Dosage: 120 MG, QD FOR 2 WEEKS THEN OFF 1 WEEK
     Dates: end: 20220804

REACTIONS (4)
  - Constipation [Recovering/Resolving]
  - Muscle spasms [Recovering/Resolving]
  - Atrial fibrillation [Recovering/Resolving]
  - Arrhythmia [Recovering/Resolving]

NARRATIVE: CASE EVENT DATE: 20220806
